FAERS Safety Report 6166155-6 (Version None)
Quarter: 2009Q2

REPORT INFORMATION
  Report Type: 
  Country: None (occurrence: None)
  Receive Date: 20090422
  Receipt Date: 20090422
  Transmission Date: 20091009
  Serious: No
  Sender: FDA-Public Use
  Company Number: None

PATIENT
  Age: 23 Year
  Sex: Male
  Weight: 67.1324 kg

DRUGS (1)
  1. ISOTRETINOIN [Suspect]
     Indication: ACNE
     Dosage: 60 MG -3 CAPSULES- ONCE DAILY PO
     Route: 048
     Dates: start: 20090101, end: 20090417

REACTIONS (2)
  - HAIR GROWTH ABNORMAL [None]
  - NAIL GROWTH ABNORMAL [None]
